FAERS Safety Report 9612647 (Version 1)
Quarter: 2013Q4

REPORT INFORMATION
  Report Type: Spontaneous
  Country: IT (occurrence: IT)
  Receive Date: 20131010
  Receipt Date: 20131010
  Transmission Date: 20140711
  Serious: Yes (Other)
  Sender: FDA-Public Use
  Company Number: IT-UCBSA-099228

PATIENT
  Age: 8 Year
  Sex: Female
  Weight: 34 kg

DRUGS (6)
  1. KEPPRA [Suspect]
     Indication: EPILEPSY
     Dosage: UNKNOWN DOSE
  2. KEPPRA [Suspect]
     Indication: EPILEPSY
     Dosage: REDUCED DOSE
  3. KEPPRA [Suspect]
     Indication: EPILEPSY
     Dosage: INCREASED DOSE
  4. TOLEP [Concomitant]
  5. DINTOINA [Concomitant]
  6. DINTOINA [Concomitant]
     Dosage: DOWN TITRATED

REACTIONS (1)
  - Electrocardiogram QT prolonged [Unknown]
